FAERS Safety Report 11828666 (Version 1)
Quarter: 2015Q4

REPORT INFORMATION
  Report Type: Spontaneous
  Country: US (occurrence: US)
  Receive Date: 20151211
  Receipt Date: 20151211
  Transmission Date: 20160305
  Serious: No
  Sender: FDA-Public Use
  Company Number: US-JUBILANT CADISTA PHARMACEUTICALS-2015JUB00229

PATIENT
  Age: 81 Year
  Sex: Female
  Weight: 45.35 kg

DRUGS (3)
  1. METHYLPREDNISOLONE. [Suspect]
     Active Substance: METHYLPREDNISOLONE
     Dosage: 20 MG, ONCE
     Route: 048
     Dates: start: 20150723, end: 20150723
  2. UNSPECIFIED MEDICATION(S) FOR EMPHYSEMA [Concomitant]
  3. METHYLPREDNISOLONE. [Suspect]
     Active Substance: METHYLPREDNISOLONE
     Indication: EMPHYSEMA
     Dosage: 24 MG, ONCE
     Route: 048
     Dates: start: 20150722, end: 20150722

REACTIONS (3)
  - Swelling face [Not Recovered/Not Resolved]
  - Paraesthesia [Not Recovered/Not Resolved]
  - Feeling hot [Not Recovered/Not Resolved]

NARRATIVE: CASE EVENT DATE: 20150723
